FAERS Safety Report 21498637 (Version 1)
Quarter: 2022Q4

REPORT INFORMATION
  Report Type: Spontaneous
  Country: US (occurrence: None)
  Receive Date: 20221022
  Receipt Date: 20221022
  Transmission Date: 20230113
  Serious: No
  Sender: FDA-Public Use
  Company Number: None

PATIENT
  Age: 56 Year
  Sex: Female
  Weight: 103.42 kg

DRUGS (10)
  1. IMATINIB [Suspect]
     Active Substance: IMATINIB
     Indication: Gastrointestinal stromal tumour
     Dosage: FREQUENCY : DAILY;?
     Route: 048
     Dates: start: 20201102
  2. FUROSEMIDE [Concomitant]
     Active Substance: FUROSEMIDE
  3. GABAPENTIN [Concomitant]
     Active Substance: GABAPENTIN
  4. LEVEMIR [Concomitant]
     Active Substance: INSULIN DETEMIR
  5. LISINOPRIL [Concomitant]
     Active Substance: LISINOPRIL
  6. MELOXICAM [Concomitant]
     Active Substance: MELOXICAM
  7. MUCINEX [Concomitant]
     Active Substance: GUAIFENESIN
  8. NOVOLOG [Concomitant]
     Active Substance: INSULIN ASPART
  9. POTASSIUM CHLORIDE [Concomitant]
     Active Substance: POTASSIUM CHLORIDE
  10. WELLBUTRIN [Concomitant]
     Active Substance: BUPROPION HYDROCHLORIDE

REACTIONS (1)
  - Hospitalisation [None]

NARRATIVE: CASE EVENT DATE: 20221022
